FAERS Safety Report 8124718-2 (Version None)
Quarter: 2012Q1

REPORT INFORMATION
  Report Type: 
  Country: None (occurrence: None)
  Receive Date: 20120209
  Receipt Date: 20120208
  Transmission Date: 20120608
  Serious: Yes (Other)
  Sender: FDA-Public Use
  Company Number: BR-BAYER-2012-012834

PATIENT
  Age: 21 Year
  Sex: Male
  Weight: 50 kg

DRUGS (1)
  1. FLANAX [Suspect]
     Indication: MIGRAINE
     Dosage: THE CONSUMER TOOK FLANAX AT 10AM
     Route: 048
     Dates: start: 20120208, end: 20120208

REACTIONS (3)
  - EYE SWELLING [None]
  - OROPHARYNGEAL DISCOMFORT [None]
  - HYPERSENSITIVITY [None]
